FAERS Safety Report 17490114 (Version 1)
Quarter: 2020Q1

REPORT INFORMATION
  Report Type: Spontaneous
  Country: US (occurrence: US)
  Receive Date: 20200303
  Receipt Date: 20200303
  Transmission Date: 20200409
  Serious: Yes (Other)
  Sender: FDA-Public Use
  Company Number: US-AKORN PHARMACEUTICALS-2019AKN02148

PATIENT
  Age: 67 Year
  Sex: Female
  Weight: 81.63 kg

DRUGS (1)
  1. MYORISAN [Suspect]
     Active Substance: ISOTRETINOIN
     Indication: ACNE CONGLOBATA
     Dosage: 30 MG, 2X/DAY
     Dates: start: 20190904, end: 20190918

REACTIONS (2)
  - Cataract [Unknown]
  - Eye irritation [Unknown]

NARRATIVE: CASE EVENT DATE: 201909
